FAERS Safety Report 15626413 (Version 1)
Quarter: 2018Q4

REPORT INFORMATION
  Report Type: Spontaneous
  Country: US (occurrence: US)
  Receive Date: 20181116
  Receipt Date: 20181116
  Transmission Date: 20190205
  Serious: No
  Sender: FDA-Public Use
  Company Number: US-SA-2018SA314467

PATIENT
  Age: 53 Year
  Sex: Female

DRUGS (1)
  1. BALMEX CREAM (ZINC OXIDE) [Suspect]
     Active Substance: ZINC OXIDE
     Indication: VULVOVAGINAL DRYNESS
     Dosage: UNK
     Dates: start: 201810

REACTIONS (2)
  - Vulvovaginal burning sensation [Unknown]
  - Vulvovaginal pruritus [Unknown]
